FAERS Safety Report 7480796-5 (Version None)
Quarter: 2011Q2

REPORT INFORMATION
  Report Type: 
  Country: None (occurrence: None)
  Receive Date: 20110516
  Receipt Date: 20110502
  Transmission Date: 20111010
  Serious: Yes (Death, Life-Threatening, Hospitalization, Other)
  Sender: FDA-Public Use
  Company Number: US-ELI_LILLY_AND_COMPANY-US201103003812

PATIENT
  Age: 84 Year
  Sex: Female
  Weight: 48 kg

DRUGS (10)
  1. PEPCID [Concomitant]
  2. FORTEO [Suspect]
     Indication: OSTEOPOROSIS
     Dosage: 20 UG, DAILY (1/D)
     Route: 058
     Dates: start: 20100630
  3. PREDNISONE [Concomitant]
     Dosage: 5 MG, QD
  4. AMLODIPINE BESYLATE [Concomitant]
     Dosage: 10 MG, QD
  5. TRAMADOL HYDROCHLORIDE [Concomitant]
  6. SIMVASTATIN [Concomitant]
  7. DILAUDID [Concomitant]
  8. FENTANYL [Concomitant]
  9. BONIVA [Concomitant]
  10. ACTONEL [Concomitant]

REACTIONS (11)
  - DEPRESSED LEVEL OF CONSCIOUSNESS [None]
  - PAIN [None]
  - RHEUMATOID ARTHRITIS [None]
  - DISORIENTATION [None]
  - HIP FRACTURE [None]
  - STERNAL FRACTURE [None]
  - RESUSCITATION [None]
  - RIB FRACTURE [None]
  - RESPIRATORY ARREST [None]
  - ARRHYTHMIA [None]
  - FALL [None]
